FAERS Safety Report 9782395 (Version 2)
Quarter: 2013Q4

REPORT INFORMATION
  Report Type: Report from Study
  Country: SG (occurrence: SG)
  Receive Date: 20131226
  Receipt Date: 20131226
  Transmission Date: 20140711
  Serious: Yes (Hospitalization)
  Sender: FDA-Public Use
  Company Number: PHHY2012SG026217

PATIENT
  Age: 61 Year
  Sex: Male

DRUGS (4)
  1. GLIVEC [Suspect]
     Indication: CHRONIC MYELOID LEUKAEMIA
     Dosage: 400 MG, DAILY
     Dates: start: 20090728
  2. RECORMON [Concomitant]
  3. IRON [Concomitant]
  4. FERINJECT [Concomitant]

REACTIONS (1)
  - Renal failure chronic [Not Recovered/Not Resolved]
